FAERS Safety Report 9522841 (Version 1)
Quarter: 2013Q3

REPORT INFORMATION
  Report Type: Spontaneous
  Country: US (occurrence: None)
  Receive Date: 20130913
  Receipt Date: 20130913
  Transmission Date: 20140515
  Serious: Yes (Hospitalization)
  Sender: FDA-Public Use
  Company Number: None

PATIENT
  Age: 49 Year
  Sex: Female
  Weight: 86.64 kg

DRUGS (15)
  1. PREDNISOLONE [Suspect]
     Indication: JOINT INJECTION
     Dates: start: 20130905, end: 20130905
  2. LIDOCAINE 1% [Suspect]
     Indication: JOINT INJECTION
     Dates: start: 20130905, end: 20130905
  3. CLONAZEPAM [Concomitant]
  4. LORATADINE [Concomitant]
  5. FLUOXETINE [Concomitant]
  6. PRILOSEC [Concomitant]
  7. NIACIN [Concomitant]
  8. CRANBERRY FRUIT [Concomitant]
  9. VITAMIN C [Concomitant]
  10. CALCIUM +D [Concomitant]
  11. PROAIR HFA [Concomitant]
  12. ADVAIR [Concomitant]
  13. EVISTA [Concomitant]
  14. PRAVASTATIN [Concomitant]
  15. INDOMETHACIN [Concomitant]

REACTIONS (4)
  - Injection site pain [None]
  - Injection site warmth [None]
  - Injection site erythema [None]
  - Injection site swelling [None]
